FAERS Safety Report 13494742 (Version 2)
Quarter: 2018Q2

REPORT INFORMATION
  Report Type: Spontaneous
  Country: US (occurrence: US)
  Receive Date: 20170428
  Receipt Date: 20180423
  Transmission Date: 20180711
  Serious: Yes (Hospitalization)
  Sender: FDA-Public Use
  Company Number: US-ALVOGEN-2015-ALVOGEN-012466

PATIENT
  Age: 60 Year
  Sex: Female
  Weight: 61.01 kg

DRUGS (12)
  1. MACROBID [Suspect]
     Active Substance: NITROFURANTOIN\NITROFURANTOIN MONOHYDRATE
     Indication: URINARY TRACT INFECTION
     Route: 048
     Dates: start: 20131003, end: 20131009
  2. FISH OIL [Concomitant]
     Active Substance: FISH OIL
     Indication: PRODUCT USED FOR UNKNOWN INDICATION
     Dates: start: 201307
  3. MUCINEX [Concomitant]
     Active Substance: GUAIFENESIN
     Indication: SEASONAL ALLERGY
     Route: 048
     Dates: start: 2005
  4. CIPRO [Concomitant]
     Active Substance: CIPROFLOXACIN HYDROCHLORIDE
     Indication: URINARY TRACT INFECTION
     Route: 048
     Dates: start: 20131001, end: 20131003
  5. CRESTOR [Concomitant]
     Active Substance: ROSUVASTATIN CALCIUM
     Indication: HYPERCHOLESTEROLAEMIA
     Route: 048
     Dates: start: 2011
  6. XGEVA [Concomitant]
     Active Substance: DENOSUMAB
     Indication: PROPHYLAXIS
     Route: 058
     Dates: start: 20130903
  7. ASCORBIC ACID/CALCIUM CARBONATE/CYANOCOBALAMIN/NICOTINAMIDE/PYRIDOXINE HYDROCHLORIDE/RIBOFLAVIN SODI [Concomitant]
     Indication: PRODUCT USED FOR UNKNOWN INDICATION
  8. PALBOCICLIB [Suspect]
     Active Substance: PALBOCICLIB
     Indication: BREAST CANCER
     Route: 048
     Dates: start: 20130917
  9. VITAMIN E [Concomitant]
     Active Substance: .ALPHA.-TOCOPHEROL
     Indication: PROPHYLAXIS
     Route: 048
     Dates: start: 201307
  10. LETROZOLE. [Suspect]
     Active Substance: LETROZOLE
     Indication: BREAST CANCER
     Route: 048
     Dates: start: 20130917
  11. NEXIUM [Concomitant]
     Active Substance: ESOMEPRAZOLE MAGNESIUM
     Indication: GASTROOESOPHAGEAL REFLUX DISEASE
     Route: 048
     Dates: start: 2001
  12. CALCIUM VITAMIN D [Concomitant]
     Active Substance: CALCIUM\VITAMIN D
     Indication: PROPHYLAXIS
     Route: 048
     Dates: start: 2005

REACTIONS (9)
  - Arthralgia [Recovered/Resolved]
  - Rash [Unknown]
  - Pyrexia [Recovered/Resolved]
  - Aspartate aminotransferase increased [Unknown]
  - Headache [Recovered/Resolved]
  - Fatigue [Recovered/Resolved]
  - Neutropenia [Recovered/Resolved]
  - Myalgia [Recovered/Resolved]
  - Alanine aminotransferase increased [Unknown]

NARRATIVE: CASE EVENT DATE: 20131001
